FAERS Safety Report 9978000 (Version 2)
Quarter: 2014Q2

REPORT INFORMATION
  Report Type: Report from Study
  Country: US (occurrence: US)
  Receive Date: 20140306
  Receipt Date: 20140505
  Transmission Date: 20141212
  Serious: Yes (Hospitalization)
  Sender: FDA-Public Use
  Company Number: US-ABBVIE-14P-163-1206920-00

PATIENT
  Age: 33 Year
  Sex: Female
  Weight: 81.72 kg

DRUGS (16)
  1. HUMIRA [Suspect]
     Indication: PSORIATIC ARTHROPATHY
  2. METHOTREXATE [Concomitant]
     Indication: PSORIATIC ARTHROPATHY
     Route: 048
  3. PREDNISONE [Concomitant]
     Indication: PSORIATIC ARTHROPATHY
  4. PREDNISONE [Concomitant]
     Route: 048
  5. FOLIC ACID [Concomitant]
     Indication: VITAMIN SUPPLEMENTATION
     Route: 048
  6. CALCIUM [Concomitant]
     Indication: MINERAL SUPPLEMENTATION
  7. AMBIEN [Concomitant]
     Indication: INSOMNIA
     Dosage: EVERY EVENING PRIOR TO BEDTIME
     Route: 048
  8. COMPAZINE [Concomitant]
     Indication: NAUSEA
  9. XANAX [Concomitant]
     Indication: PRODUCT USED FOR UNKNOWN INDICATION
     Dosage: 1 X 1MG
  10. ORTHOCEPT [Concomitant]
     Indication: CONTRACEPTION
  11. ARMOUR THYROID [Concomitant]
     Indication: THYROIDECTOMY
  12. OXYCODONE [Concomitant]
     Indication: PAIN
     Dosage: EVERY 4-6 HRS
     Route: 048
  13. ATARAX [Concomitant]
     Indication: PRURITUS
  14. CELEXA [Concomitant]
     Indication: DEPRESSION
     Dosage: DAILY
     Route: 048
  15. HYZAAR [Concomitant]
     Indication: HYPERTENSION
     Dosage: 100 MG/25 MG
  16. CALCIUM VIT D [Concomitant]
     Indication: PRODUCT USED FOR UNKNOWN INDICATION
     Dosage: 600MG/1500MG-400 UNIT
     Route: 048

REACTIONS (9)
  - Gastrointestinal inflammation [Recovering/Resolving]
  - Infectious colitis [Recovering/Resolving]
  - Diarrhoea [Recovering/Resolving]
  - Vomiting [Recovered/Resolved]
  - Nausea [Recovered/Resolved]
  - Loss of consciousness [Recovered/Resolved]
  - Dehydration [Recovered/Resolved]
  - Asthenia [Recovered/Resolved]
  - Intervertebral disc protrusion [Unknown]
